FAERS Safety Report 14740021 (Version 2)
Quarter: 2018Q2

REPORT INFORMATION
  Report Type: Spontaneous
  Country: CH (occurrence: CH)
  Receive Date: 20180410
  Receipt Date: 20180427
  Transmission Date: 20180711
  Serious: Yes (Other)
  Sender: FDA-Public Use
  Company Number: CH-ALKEM LABORATORIES LIMITED-CH-ALKEM-2018-01767

PATIENT
  Age: 39 Year
  Sex: Male

DRUGS (2)
  1. METHADONE HYDROCHLORIDE. [Suspect]
     Active Substance: METHADONE HYDROCHLORIDE
     Indication: PRODUCT USED FOR UNKNOWN INDICATION
     Dosage: INJECTED HIMSELF INTRA-ARTERIALLY WITH A MIXTURE OF METHADONE, FLUNITRAZEPAM, SALIVA AND WATER
     Route: 013
  2. FLUNITRAZEPAM [Suspect]
     Active Substance: FLUNITRAZEPAM
     Indication: PRODUCT USED FOR UNKNOWN INDICATION
     Dosage: INJECTED HIMSELF INTRA-ARTERIALLY WITH A MIXTURE OF METHADONE, FLUNITRAZEPAM, SALIVA AND WATER
     Route: 013

REACTIONS (2)
  - Compartment syndrome [Recovering/Resolving]
  - Intentional product misuse [Unknown]
